FAERS Safety Report 19562477 (Version 1)
Quarter: 2021Q3

REPORT INFORMATION
  Report Type: Spontaneous
  Country: BR (occurrence: BR)
  Receive Date: 20210715
  Receipt Date: 20210715
  Transmission Date: 20211014
  Serious: Yes (Hospitalization, Congenital Anomaly)
  Sender: FDA-Public Use
  Company Number: BR-PFIZER INC-2021844185

PATIENT
  Sex: Male
  Weight: 2.6 kg

DRUGS (3)
  1. MISOPROSTOL. [Suspect]
     Active Substance: MISOPROSTOL
     Indication: ABORTION INDUCED
     Dosage: 800 UG, SINGLE
     Route: 064
  2. TETANUS TOXOID [Concomitant]
     Active Substance: TETANUS TOXOIDS
  3. IRON [Concomitant]
     Active Substance: IRON

REACTIONS (2)
  - Skull malformation [Unknown]
  - Foetal exposure during pregnancy [Unknown]
